FAERS Safety Report 6992270-0 (Version None)
Quarter: 2010Q3

REPORT INFORMATION
  Report Type: 
  Country: None (occurrence: None)
  Receive Date: 20100917
  Receipt Date: 20100914
  Transmission Date: 20110219
  Serious: Yes (Death)
  Sender: FDA-Public Use
  Company Number: US-SHIRE-SPV1-2010-00939

PATIENT
  Sex: Male
  Weight: 63.492 kg

DRUGS (5)
  1. VYVANSE [Suspect]
     Indication: ATTENTION DEFICIT/HYPERACTIVITY DISORDER
     Dosage: 50 MG, 1X/DAY:QD
     Route: 048
     Dates: start: 20070912, end: 20100503
  2. VYVANSE [Suspect]
     Indication: SOMNOLENCE
  3. LUNESTA [Concomitant]
     Indication: SLEEP DISORDER
     Dosage: 3 MG, UNK
     Route: 048
     Dates: start: 20100317
  4. LUNESTA [Concomitant]
     Dosage: 3 MG, UNK
     Dates: start: 20081001
  5. PROVIGIL [Concomitant]
     Indication: HYPERSOMNIA
     Dosage: 200 MG, UNK
     Route: 048
     Dates: start: 20050101

REACTIONS (1)
  - CONVULSION [None]
